FAERS Safety Report 11181965 (Version 2)
Quarter: 2015Q3

REPORT INFORMATION
  Report Type: Spontaneous
  Country: US (occurrence: US)
  Receive Date: 20150611
  Receipt Date: 20150914
  Transmission Date: 20151125
  Serious: No
  Sender: FDA-Public Use
  Company Number: US-ASTELLAS-2015US015665

PATIENT
  Age: 84 Year
  Sex: Male

DRUGS (1)
  1. XTANDI [Suspect]
     Active Substance: ENZALUTAMIDE
     Indication: PROSTATE CANCER
     Route: 048
     Dates: start: 20150411

REACTIONS (8)
  - Hot flush [Unknown]
  - Arthralgia [Unknown]
  - Hot flush [Unknown]
  - Arthralgia [Unknown]
  - Blood urine present [Unknown]
  - Pain in extremity [Unknown]
  - Somnolence [Unknown]
  - Bone pain [Unknown]

NARRATIVE: CASE EVENT DATE: 20150505
